FAERS Safety Report 11484026 (Version 2)
Quarter: 2015Q3

REPORT INFORMATION
  Report Type: Spontaneous
  Country: US (occurrence: US)
  Receive Date: 20150903
  Receipt Date: 20150903
  Transmission Date: 20151125
  Serious: No
  Sender: FDA-Public Use
  Company Number: US-ELI_LILLY_AND_COMPANY-US201204002866

PATIENT
  Age: 81 Year
  Sex: Male

DRUGS (4)
  1. CYMBALTA [Suspect]
     Active Substance: DULOXETINE HYDROCHLORIDE
     Indication: NECK PAIN
     Dosage: 30 MG, QD
     Dates: start: 201203
  2. BACLOFEN. [Concomitant]
     Active Substance: BACLOFEN
  3. COUMADIN [Concomitant]
     Active Substance: WARFARIN SODIUM
  4. ASPIRIN                                 /USA/ [Concomitant]

REACTIONS (5)
  - Chromaturia [Not Recovered/Not Resolved]
  - Drug ineffective [Not Recovered/Not Resolved]
  - Pruritus [Not Recovered/Not Resolved]
  - Musculoskeletal chest pain [Not Recovered/Not Resolved]
  - Urinary hesitation [Not Recovered/Not Resolved]
